FAERS Safety Report 5719317-3 (Version None)
Quarter: 2008Q2

REPORT INFORMATION
  Report Type: 
  Country: None (occurrence: None)
  Receive Date: 20080428
  Receipt Date: 20080422
  Transmission Date: 20081010
  Serious: Yes (Other)
  Sender: FDA-Public Use
  Company Number: PHEH2008US03435

PATIENT
  Age: 64 Year
  Sex: Male

DRUGS (10)
  1. ZOMETA [Suspect]
     Indication: METASTASES TO BONE
     Dosage: 4MG, MONTHLY
     Route: 042
     Dates: start: 20050831, end: 20071218
  2. LUPRON [Concomitant]
     Indication: PROSTATE CANCER METASTATIC
     Dosage: 22.5MG, Q3MONTHS
     Route: 042
     Dates: start: 20050831, end: 20080220
  3. ANTIDIABETICS [Concomitant]
  4. FLOMAX [Concomitant]
     Indication: BENIGN PROSTATIC HYPERPLASIA
  5. LISINOPRIL [Concomitant]
     Indication: HYPERTENSION
     Dosage: 10 MG, QD
  6. ACTOPLUS MET [Concomitant]
     Dosage: 2 DAILY
  7. GABAPENTIN [Concomitant]
     Dosage: 3 DAILY
  8. MORPHINE [Concomitant]
     Dosage: EVERY 12 HOURS
  9. MEGACE [Concomitant]
     Indication: PROSTATE CANCER
     Dosage: 40 MG, QD
  10. DOSS [Concomitant]
     Indication: CONSTIPATION
     Dosage: 100 MG, 2 TIMES PER DAY, PRN

REACTIONS (30)
  - ALVEOLAR OSTEITIS [None]
  - ANGINA PECTORIS [None]
  - ASTHMA [None]
  - BACK PAIN [None]
  - BONE DISORDER [None]
  - CHEST PAIN [None]
  - DENTAL CARIES [None]
  - DENTAL TREATMENT [None]
  - DIABETIC NEUROPATHY [None]
  - DYSPNOEA [None]
  - EDENTULOUS [None]
  - ERYTHEMA [None]
  - FATIGUE [None]
  - FEELING OF BODY TEMPERATURE CHANGE [None]
  - IMPAIRED HEALING [None]
  - LOOSE TOOTH [None]
  - MASTICATION DISORDER [None]
  - ORAL DISORDER [None]
  - OSTEONECROSIS [None]
  - PAIN IN JAW [None]
  - PERIODONTITIS [None]
  - POOR PERSONAL HYGIENE [None]
  - RADIOTHERAPY [None]
  - SPINAL COLUMN STENOSIS [None]
  - SWELLING [None]
  - TEMPERATURE INTOLERANCE [None]
  - TOOTH DISORDER [None]
  - TOOTH EXTRACTION [None]
  - TOOTHACHE [None]
  - TYPE 2 DIABETES MELLITUS [None]
